FAERS Safety Report 7178096-6 (Version None)
Quarter: 2010Q4

REPORT INFORMATION
  Report Type: 
  Country: None (occurrence: None)
  Receive Date: 20101220
  Receipt Date: 20101209
  Transmission Date: 20110411
  Serious: Yes (Hospitalization)
  Sender: FDA-Public Use
  Company Number: A0899954A

PATIENT
  Age: 76 Year
  Sex: Female

DRUGS (3)
  1. PROMACTA [Suspect]
     Dates: start: 20100615, end: 20100801
  2. CORTICOSTEROIDS [Concomitant]
  3. RITUXIMAB [Concomitant]

REACTIONS (2)
  - ADVERSE EVENT [None]
  - HERPES VIRUS INFECTION [None]
